FAERS Safety Report 7541566-2 (Version None)
Quarter: 2011Q2

REPORT INFORMATION
  Report Type: 
  Country: None (occurrence: None)
  Receive Date: 20110613
  Receipt Date: 20110610
  Transmission Date: 20111010
  Serious: No
  Sender: FDA-Public Use
  Company Number: US-PFIZER INC-2011127675

PATIENT
  Sex: Female
  Weight: 102.4 kg

DRUGS (8)
  1. KLONOPIN [Concomitant]
     Dosage: UNK
  2. LYRICA [Suspect]
     Dosage: 300 MG, 2X/DAY
     Route: 048
     Dates: start: 20100501
  3. LASIX [Concomitant]
     Dosage: UNK
  4. LYRICA [Suspect]
     Indication: FIBROMYALGIA
     Dosage: 450 MG, 1X/DAY
     Route: 048
     Dates: start: 20090101, end: 20100501
  5. METHOTREXATE [Concomitant]
     Dosage: UNK
  6. KINERET [Concomitant]
     Dosage: UNK
  7. ABILIFY [Concomitant]
     Dosage: UNK
  8. TRAZODONE [Concomitant]
     Dosage: UNK

REACTIONS (4)
  - DRUG EFFECT DECREASED [None]
  - PLATELET COUNT DECREASED [None]
  - OEDEMA PERIPHERAL [None]
  - BLADDER DISORDER [None]
